FAERS Safety Report 10109267 (Version 6)
Quarter: 2015Q2

REPORT INFORMATION
  Report Type: Report from Study
  Country: IT (occurrence: None)
  Receive Date: 20140423
  Receipt Date: 20150612
  Transmission Date: 20150821
  Serious: Yes (Hospitalization, Other)
  Sender: FDA-Public Use
  Company Number: 2014MPI00385

PATIENT
  Age: 52 Year
  Sex: Female
  Weight: 67 kg

DRUGS (4)
  1. VINBLASTINE [Suspect]
     Active Substance: VINBLASTINE
     Indication: HODGKIN^S DISEASE
     Route: 042
     Dates: start: 20131216, end: 20140324
  2. BRENTUXIMAB VEDOTIN [Suspect]
     Active Substance: BRENTUXIMAB VEDOTIN
     Indication: HODGKIN^S DISEASE
     Route: 042
     Dates: start: 20131216, end: 20140324
  3. DACARBAZINE. [Suspect]
     Active Substance: DACARBAZINE
     Indication: HODGKIN^S DISEASE
     Dates: start: 20131216, end: 20140324
  4. DOXORUBICIN [Suspect]
     Active Substance: DOXORUBICIN
     Indication: HODGKIN^S DISEASE
     Route: 042
     Dates: start: 20131216, end: 20140324

REACTIONS (7)
  - Interstitial lung disease [None]
  - Respiratory failure [None]
  - Muscle spasms [None]
  - Pneumonia [None]
  - Haemoglobin decreased [None]
  - Platelet count increased [None]
  - Blood lactate dehydrogenase [None]

NARRATIVE: CASE EVENT DATE: 20140407
